FAERS Safety Report 14503047 (Version 1)
Quarter: 2018Q1

REPORT INFORMATION
  Report Type: Spontaneous
  Country: US (occurrence: US)
  Receive Date: 20180208
  Receipt Date: 20180208
  Transmission Date: 20180509
  Serious: No
  Sender: FDA-Public Use
  Company Number: US-PFIZER INC-2018047490

PATIENT
  Age: 79 Year
  Sex: Female
  Weight: 53.52 kg

DRUGS (3)
  1. LOSARTAN. [Concomitant]
     Active Substance: LOSARTAN
     Indication: BLOOD PRESSURE ABNORMAL
     Dosage: 50 MG, UNK
  2. ATROPINE SULFATE/DIPHENOXYLATE HYDROCHLORIDE [Suspect]
     Active Substance: ATROPINE SULFATE\DIPHENOXYLATE HYDROCHLORIDE
     Dosage: UNK
  3. WARFARIN [Concomitant]
     Active Substance: WARFARIN
     Indication: CARDIAC ASSISTANCE DEVICE USER
     Dosage: 3 MG, UNK

REACTIONS (6)
  - Expired product administered [Unknown]
  - Product use issue [Unknown]
  - Halo vision [Unknown]
  - Dizziness [Unknown]
  - Vision blurred [Unknown]
  - Diplopia [Not Recovered/Not Resolved]
